FAERS Safety Report 5262528-4 (Version None)
Quarter: 2007Q1

REPORT INFORMATION
  Report Type: 
  Country: None (occurrence: None)
  Receive Date: 20070312
  Receipt Date: 20070227
  Transmission Date: 20070707
  Serious: Yes (Hospitalization)
  Sender: FDA-Public Use
  Company Number: PHBS2007JP02880

PATIENT
  Age: 66 Year
  Sex: Female
  Weight: 55 kg

DRUGS (7)
  1. ASPIRIN [Concomitant]
  2. LUDIOMIL [Suspect]
     Indication: DEPRESSION
     Dosage: 10 MG/D
     Route: 048
     Dates: start: 20061026, end: 20070130
  3. PLAVIX [Suspect]
     Indication: CEREBROVASCULAR ACCIDENT PROPHYLAXIS
     Dosage: 75 MG/D
     Route: 048
     Dates: start: 20060801, end: 20070130
  4. OLMETEC [Concomitant]
     Dosage: 20 MG/D
     Route: 048
     Dates: start: 20060801
  5. ATELEC [Concomitant]
     Dosage: 10 MG/D
     Route: 048
     Dates: start: 20060801
  6. DEPAS [Concomitant]
     Dosage: 0.5 MG/D
     Route: 048
     Dates: start: 20060801
  7. LENDORMIN [Concomitant]
     Dosage: 0.25 MG/D
     Route: 048
     Dates: start: 20060801

REACTIONS (8)
  - CELL MARKER INCREASED [None]
  - CHEST X-RAY ABNORMAL [None]
  - DYSPNOEA [None]
  - INTERSTITIAL LUNG DISEASE [None]
  - LYMPHOCYTE STIMULATION TEST POSITIVE [None]
  - PO2 DECREASED [None]
  - PULMONARY FUNCTION TEST INCREASED [None]
  - WHITE BLOOD CELL COUNT INCREASED [None]
